FAERS Safety Report 14402636 (Version 1)
Quarter: 2018Q1

REPORT INFORMATION
  Report Type: Spontaneous
  Country: US (occurrence: US)
  Receive Date: 20180117
  Receipt Date: 20180117
  Transmission Date: 20180509
  Serious: No
  Sender: FDA-Public Use
  Company Number: US-MYLANLABS-2018M1001241

PATIENT
  Sex: Female
  Weight: 64.4 kg

DRUGS (1)
  1. ESTRADIOL TRANSDERMAL SYSTEM [Suspect]
     Active Substance: ESTRADIOL
     Indication: PRODUCT USED FOR UNKNOWN INDICATION
     Dosage: UNK UNK, (TWICE WEEKLY)
     Route: 062
     Dates: start: 2016, end: 201610

REACTIONS (5)
  - Application site pain [Unknown]
  - Hypersensitivity [Unknown]
  - Product adhesion issue [Unknown]
  - Application site pruritus [Unknown]
  - Application site erythema [Unknown]
